FAERS Safety Report 12408945 (Version 2)
Quarter: 2016Q2

REPORT INFORMATION
  Report Type: Spontaneous
  Country: US (occurrence: US)
  Receive Date: 20160526
  Receipt Date: 20160614
  Transmission Date: 20160815
  Serious: Yes (Hospitalization, Other)
  Sender: FDA-Public Use
  Company Number: US-GLAXOSMITHKLINE-US2016075255

PATIENT
  Age: 68 Year
  Sex: Female

DRUGS (15)
  1. ADVAIR DISKUS [Suspect]
     Active Substance: FLUTICASONE PROPIONATE\SALMETEROL XINAFOATE
     Indication: CHRONIC OBSTRUCTIVE PULMONARY DISEASE
     Dosage: 1 DF, BID
     Dates: start: 2001
  2. FUROSEMIDE. [Concomitant]
     Active Substance: FUROSEMIDE
  3. AMIODARONE [Concomitant]
     Active Substance: AMIODARONE
  4. WARFARIN [Concomitant]
     Active Substance: WARFARIN
  5. FELODIPINE. [Concomitant]
     Active Substance: FELODIPINE
  6. SIMVASTATIN. [Concomitant]
     Active Substance: SIMVASTATIN
  7. SPIRIVA [Concomitant]
     Active Substance: TIOTROPIUM BROMIDE MONOHYDRATE
  8. ENALAPRIL [Concomitant]
     Active Substance: ENALAPRIL
  9. ISOSORBIDE. [Concomitant]
     Active Substance: ISOSORBIDE
  10. OMEPRAZOLE. [Concomitant]
     Active Substance: OMEPRAZOLE
  11. ALLOPURINOL. [Concomitant]
     Active Substance: ALLOPURINOL
  12. CARVEDILOL. [Concomitant]
     Active Substance: CARVEDILOL
  13. ALPRAZOLAM. [Concomitant]
     Active Substance: ALPRAZOLAM
  14. KLOR-CON [Concomitant]
     Active Substance: POTASSIUM CHLORIDE
  15. METFORMIN [Concomitant]
     Active Substance: METFORMIN HYDROCHLORIDE

REACTIONS (1)
  - Pneumonia [Recovered/Resolved]

NARRATIVE: CASE EVENT DATE: 20151225
